FAERS Safety Report 15891355 (Version 1)
Quarter: 2019Q1

REPORT INFORMATION
  Report Type: Spontaneous
  Country: US (occurrence: US)
  Receive Date: 20190130
  Receipt Date: 20190130
  Transmission Date: 20190417
  Serious: No
  Sender: FDA-Public Use
  Company Number: US-ALLERGAN-1833267US

PATIENT
  Age: 72 Year
  Sex: Female

DRUGS (2)
  1. AMBIEN [Concomitant]
     Active Substance: ZOLPIDEM TARTRATE
     Indication: SLEEP DISORDER
     Dosage: UNK
  2. VIIBRYD [Suspect]
     Active Substance: VILAZODONE HYDROCHLORIDE
     Indication: DEPRESSION
     Dosage: 1/4 OF 20 MG DF QD
     Route: 048
     Dates: start: 20180628, end: 20180630

REACTIONS (6)
  - Product prescribing error [Unknown]
  - Swelling face [Recovered/Resolved]
  - Rash macular [Recovered/Resolved]
  - Wrong technique in product usage process [Unknown]
  - Erythema [Recovered/Resolved]
  - Rash pruritic [Recovered/Resolved]

NARRATIVE: CASE EVENT DATE: 20180628
